FAERS Safety Report 6202039-2 (Version None)
Quarter: 2009Q2

REPORT INFORMATION
  Report Type: 
  Country: None (occurrence: None)
  Receive Date: 20090526
  Receipt Date: 20090518
  Transmission Date: 20091009
  Serious: Yes (Other)
  Sender: FDA-Public Use
  Company Number: B0556477A

PATIENT
  Sex: Male

DRUGS (1)
  1. RELENZA [Suspect]
     Indication: INFLUENZA
     Dosage: 10MG TWICE PER DAY
     Route: 055
     Dates: start: 20090124, end: 20090126

REACTIONS (7)
  - ADVERSE DRUG REACTION [None]
  - AGITATION [None]
  - HALLUCINATION [None]
  - NAUSEA [None]
  - PYREXIA [None]
  - RESTLESSNESS [None]
  - VOMITING [None]
